FAERS Safety Report 4816517-1 (Version None)
Quarter: 2005Q4

REPORT INFORMATION
  Report Type: 
  Country: None (occurrence: None)
  Receive Date: 20051101
  Receipt Date: 20051024
  Transmission Date: 20060501
  Serious: Yes (Hospitalization)
  Sender: FDA-Public Use
  Company Number: PHMT2005CA00445

PATIENT
  Age: 73 Year
  Sex: Female

DRUGS (8)
  1. SLOW-K [Suspect]
     Indication: CARDIAC FAILURE
     Dosage: UNK, UNK
     Dates: start: 19950101
  2. FUROSEMIDE [Concomitant]
  3. ALTACE [Concomitant]
  4. ASPIRIN [Concomitant]
  5. DIGOXIN [Concomitant]
     Dosage: 0.125 MG, UNK
  6. LIPITOR [Concomitant]
  7. GLYCERYL TRINITRATE [Concomitant]
  8. NITROGLYCERIN [Concomitant]

REACTIONS (2)
  - ABDOMINAL PAIN [None]
  - OEDEMA PERIPHERAL [None]
